FAERS Safety Report 5567008-4 (Version None)
Quarter: 2007Q4

REPORT INFORMATION
  Report Type: 
  Country: None (occurrence: None)
  Receive Date: 20071218
  Receipt Date: 20071218
  Transmission Date: 20080405
  Serious: No
  Sender: FDA-Public Use
  Company Number: None

PATIENT
  Age: 16 Year
  Sex: Male
  Weight: 54.4316 kg

DRUGS (4)
  1. DIVALPROEX SODIUM [Suspect]
     Dosage: 500,625,625 PO
     Route: 048
  2. GEODON [Concomitant]
  3. ACETAMINOPHEN [Concomitant]
  4. FIBERCON [Concomitant]

REACTIONS (2)
  - DRUG LEVEL INCREASED [None]
  - PLATELET COUNT DECREASED [None]
